FAERS Safety Report 5835720-5 (Version None)
Quarter: 2008Q3

REPORT INFORMATION
  Report Type: 
  Country: None (occurrence: None)
  Receive Date: 20080725
  Receipt Date: 20080402
  Transmission Date: 20090109
  Serious: Yes (Other)
  Sender: FDA-Public Use
  Company Number: 46919

PATIENT
  Age: 1 Year
  Sex: Male
  Weight: 11 kg

DRUGS (1)
  1. ETOPOSIDE [Suspect]
     Indication: RETINAL NEOPLASM
     Dosage: 100MG/M2 FOR 3 DAYS IV
     Route: 042
     Dates: start: 20080328

REACTIONS (3)
  - FLUSHING [None]
  - NAUSEA [None]
  - VOMITING [None]
